FAERS Safety Report 14923310 (Version 4)
Quarter: 2018Q4

REPORT INFORMATION
  Report Type: Spontaneous
  Country: JP (occurrence: JP)
  Receive Date: 20180522
  Receipt Date: 20181130
  Transmission Date: 20190204
  Serious: Yes (Hospitalization, Other)
  Sender: FDA-Public Use
  Company Number: JP-009507513-1705JPN002199J

PATIENT
  Age: 72 Year
  Sex: Male
  Weight: 46 kg

DRUGS (3)
  1. MAGMITT [Concomitant]
     Active Substance: MAGNESIUM OXIDE
     Indication: CONSTIPATION
     Dosage: 330 MG, BID
     Route: 048
  2. KEYTRUDA [Suspect]
     Active Substance: PEMBROLIZUMAB
     Indication: LUNG ADENOCARCINOMA
     Dosage: 200 MG, Q3W
     Route: 041
     Dates: start: 20170426, end: 20170426
  3. KEYTRUDA [Suspect]
     Active Substance: PEMBROLIZUMAB
     Dosage: 200 MG, Q3W
     Route: 041
     Dates: start: 20170524, end: 20170705

REACTIONS (4)
  - Pyrexia [Recovered/Resolved]
  - Dermatitis [Unknown]
  - Biliary tract disorder [Recovered/Resolved]
  - Bile duct cancer [Unknown]

NARRATIVE: CASE EVENT DATE: 20170516
